FAERS Safety Report 14615127 (Version 2)
Quarter: 2018Q1

REPORT INFORMATION
  Report Type: Spontaneous
  Country: BE (occurrence: BE)
  Receive Date: 20180308
  Receipt Date: 20180323
  Transmission Date: 20180509
  Serious: Yes (Life-Threatening, Other)
  Sender: FDA-Public Use
  Company Number: BE-MERCK KGAA-2043348

PATIENT
  Sex: Male
  Weight: 3 kg

DRUGS (13)
  1. AUGMENTIN [Suspect]
     Active Substance: AMOXICILLIN\CLAVULANATE POTASSIUM
  2. ASPIRIN. [Suspect]
     Active Substance: ASPIRIN
  3. NASONEX [Suspect]
     Active Substance: MOMETASONE FUROATE
  4. CLINDAMYCIN PHOSPHATE. [Suspect]
     Active Substance: CLINDAMYCIN PHOSPHATE
  5. NOVOTHYROX [Suspect]
     Active Substance: LEVOTHYROXINE SODIUM
     Indication: PRODUCT USED FOR UNKNOWN INDICATION
  6. XOLAIR [Suspect]
     Active Substance: OMALIZUMAB
  7. VENTOLIN [Suspect]
     Active Substance: ALBUTEROL SULFATE
  8. CELESTONE [Suspect]
     Active Substance: BETAMETHASONE
  9. AERIUS [Suspect]
     Active Substance: DESLORATADINE
  10. TRECLINAX(TRECLIN) [Suspect]
     Active Substance: CLINDAMYCIN PHOSPHATE\TRETINOIN
  11. PANTOMED (PANTOPRAZOLE SODIUM SESQUIHYDRATE) [Suspect]
     Active Substance: PANTOPRAZOLE SODIUM
  12. SERETIDE [Suspect]
     Active Substance: FLUTICASONE PROPIONATE\SALMETEROL XINAFOATE
  13. FEROGRAD(KENDURAL C) [Suspect]
     Active Substance: ASCORBIC ACID\FERROUS SULFATE

REACTIONS (3)
  - Respiratory distress [Unknown]
  - Foetal exposure during pregnancy [Recovered/Resolved]
  - Premature baby [Recovered/Resolved]

NARRATIVE: CASE EVENT DATE: 20170112
